FAERS Safety Report 7678340-2 (Version None)
Quarter: 2011Q3

REPORT INFORMATION
  Report Type: 
  Country: None (occurrence: None)
  Receive Date: 20110811
  Receipt Date: 20110713
  Transmission Date: 20111222
  Serious: No
  Sender: FDA-Public Use
  Company Number: US-PFIZER INC-2011156776

PATIENT
  Age: 76 Year
  Sex: Male
  Weight: 88.435 kg

DRUGS (1)
  1. ADVIL PM [Suspect]
     Indication: PAIN IN EXTREMITY
     Dosage: 2 DF, 1X/DAY
     Route: 048
     Dates: start: 20110709, end: 20110710

REACTIONS (2)
  - DRUG INEFFECTIVE [None]
  - PAIN IN EXTREMITY [None]
